FAERS Safety Report 5870626-7 (Version None)
Quarter: 2008Q3

REPORT INFORMATION
  Report Type: 
  Country: None (occurrence: None)
  Receive Date: 20080904
  Receipt Date: 20080825
  Transmission Date: 20090109
  Serious: Yes (Hospitalization)
  Sender: FDA-Public Use
  Company Number: B0535465A

PATIENT
  Age: 33 Year
  Sex: Male

DRUGS (16)
  1. CEFTAZIDIME [Suspect]
     Indication: ANTIBIOTIC THERAPY
  2. CO-TRIMOXAZOLE [Suspect]
  3. CIPROFLOXACIN [Suspect]
  4. BASILIXIMAB [Suspect]
     Indication: IMMUNOSUPPRESSION
  5. TACROLIMUS [Suspect]
  6. MYCOPHENOLATE MOFETIL [Suspect]
  7. PREDNISONE [Suspect]
  8. FLUCONAZOLE [Suspect]
  9. METRONIDAZOLE [Suspect]
  10. MEROPENEM [Suspect]
  11. VANCOMYCIN HCL [Suspect]
  12. FILGRASTIM [Suspect]
  13. CASPOFUNGIN [Suspect]
  14. LANSOPRAZOLE [Suspect]
  15. ANTIBACTERIAL [Suspect]
  16. ANTIFUNGAL [Suspect]

REACTIONS (11)
  - BLOOD CREATININE INCREASED [None]
  - C-REACTIVE PROTEIN INCREASED [None]
  - CHEST DISCOMFORT [None]
  - DYSPNOEA [None]
  - KIDNEY TRANSPLANT REJECTION [None]
  - PLEURAL EFFUSION [None]
  - PLEURISY [None]
  - PROPIONIBACTERIUM INFECTION [None]
  - PYREXIA [None]
  - RENAL FAILURE [None]
  - WHITE BLOOD CELL COUNT DECREASED [None]
